FAERS Safety Report 16223003 (Version 2)
Quarter: 2019Q2

REPORT INFORMATION
  Report Type: Spontaneous
  Country: US (occurrence: US)
  Receive Date: 20190422
  Receipt Date: 20190521
  Transmission Date: 20190711
  Serious: Yes (Hospitalization, Other)
  Sender: FDA-Public Use
  Company Number: US-SA-2019SA109734

PATIENT
  Age: 9 Month
  Sex: Female
  Weight: 8.7 kg

DRUGS (2)
  1. ALDURAZYME [Suspect]
     Active Substance: LARONIDASE
     Dosage: 4.785 MG, UNK
     Route: 041
     Dates: start: 20190416, end: 20190416
  2. ALDURAZYME [Suspect]
     Active Substance: LARONIDASE
     Indication: MUCOPOLYSACCHARIDOSIS I
     Dosage: UNK
     Route: 041

REACTIONS (12)
  - Anaphylactic reaction [Recovered/Resolved]
  - Flushing [Unknown]
  - Cyanosis [Unknown]
  - Vomiting [Unknown]
  - Breath sounds abnormal [Unknown]
  - Irritability [Unknown]
  - Swelling face [Unknown]
  - Oxygen saturation decreased [Recovered/Resolved]
  - Pallor [Recovered/Resolved]
  - Crepitations [Unknown]
  - Erythema [Unknown]
  - Crying [Unknown]

NARRATIVE: CASE EVENT DATE: 20190416
